FAERS Safety Report 4657567-8 (Version None)
Quarter: 2005Q2

REPORT INFORMATION
  Report Type: 
  Country: None (occurrence: None)
  Receive Date: 20050405
  Receipt Date: 20050131
  Transmission Date: 20051028
  Serious: Yes (Hospitalization)
  Sender: FDA-Public Use
  Company Number: 2005008011

PATIENT
  Age: 25 Year
  Sex: Male

DRUGS (1)
  1. GEODON [Suspect]
     Indication: BIPOLAR DISORDER
     Dosage: 240 MG (2 IN 1 D), ORAL
     Route: 048
     Dates: start: 20041201, end: 20041225

REACTIONS (1)
  - RASH [None]
